FAERS Safety Report 17117700 (Version 1)
Quarter: 2019Q4

REPORT INFORMATION
  Report Type: Spontaneous
  Country: BR (occurrence: BR)
  Receive Date: 20191205
  Receipt Date: 20191205
  Transmission Date: 20200122
  Serious: Yes (Other)
  Sender: FDA-Public Use
  Company Number: BR-BAYER-2019-216379

PATIENT
  Age: 44 Year
  Sex: Female

DRUGS (1)
  1. MIRENA [Suspect]
     Active Substance: LEVONORGESTREL
     Dosage: 20 MCG/24HR, CONT
     Route: 015
     Dates: start: 20160802, end: 20191121

REACTIONS (11)
  - Hypothyroidism [None]
  - Autoimmune disorder [None]
  - Alopecia [None]
  - Weight loss poor [None]
  - Scar [None]
  - Acne [None]
  - Female sex hormone level abnormal [None]
  - Seborrhoea [None]
  - Onychoclasis [None]
  - Weight increased [None]
  - Loss of libido [None]
